FAERS Safety Report 16853723 (Version 1)
Quarter: 2019Q4

REPORT INFORMATION
  Report Type: Spontaneous
  Country: US (occurrence: US)
  Receive Date: 20190925
  Receipt Date: 20190925
  Transmission Date: 20200122
  Serious: Yes (Other)
  Sender: FDA-Public Use
  Company Number: None

PATIENT
  Age: 62 Year
  Sex: Male

DRUGS (1)
  1. POLYMYXIN/TRIMETHOPRIM OPHTHALMIC SOLUTION [Suspect]
     Active Substance: POLYMYXIN B SULFATE\TRIMETHOPRIM
     Route: 047
     Dates: start: 20190919, end: 20190925

REACTIONS (1)
  - Blindness [None]

NARRATIVE: CASE EVENT DATE: 20190925
